FAERS Safety Report 9976867 (Version 1)
Quarter: 2014Q1

REPORT INFORMATION
  Report Type: Report from Study
  Country: US (occurrence: US)
  Receive Date: 20140306
  Receipt Date: 20140306
  Transmission Date: 20141002
  Serious: No
  Sender: FDA-Public Use
  Company Number: US-ABBVIE-13P-163-1166130-00

PATIENT
  Age: 53 Year
  Sex: Female

DRUGS (4)
  1. HUMIRA [Suspect]
     Indication: RHEUMATOID ARTHRITIS
     Dates: start: 20131029
  2. TRAMADOL [Concomitant]
     Indication: ARTHRALGIA
     Dosage: 37.5-325, 1 PILL UP TO 4 TIMES A DAY
  3. METHOTREXATE [Concomitant]
     Indication: PRODUCT USED FOR UNKNOWN INDICATION
  4. AMITRIPTYLINE [Concomitant]
     Indication: INSOMNIA
     Dosage: 2 PILLS WHEN LAYS DOWN

REACTIONS (1)
  - Headache [Recovered/Resolved]
